FAERS Safety Report 6956599-4 (Version None)
Quarter: 2010Q3

REPORT INFORMATION
  Report Type: 
  Country: None (occurrence: None)
  Receive Date: 20100830
  Receipt Date: 20100817
  Transmission Date: 20110219
  Serious: Yes (Other)
  Sender: FDA-Public Use
  Company Number: US-ELI_LILLY_AND_COMPANY-US201008006464

PATIENT
  Sex: Female

DRUGS (1)
  1. FORTEO [Suspect]
     Indication: OSTEOPOROSIS
     Dates: end: 20100816

REACTIONS (3)
  - BLOOD CALCIUM INCREASED [None]
  - NEOPLASM MALIGNANT [None]
  - THYROID FUNCTION TEST ABNORMAL [None]
